FAERS Safety Report 10539237 (Version 1)
Quarter: 2014Q4

REPORT INFORMATION
  Report Type: Spontaneous
  Country: DE (occurrence: DE)
  Receive Date: 20141023
  Receipt Date: 20141023
  Transmission Date: 20150529
  Serious: Yes (Other)
  Sender: FDA-Public Use
  Company Number: DE-ALLERGAN-1422077US

PATIENT
  Age: 89 Year
  Sex: Female

DRUGS (3)
  1. LUMIGAN [Suspect]
     Active Substance: BIMATOPROST
     Indication: GLAUCOMA
     Dosage: INSTILL IN BOTH EYES AS DIRECTED
     Route: 047
     Dates: start: 201305, end: 201404
  2. GANFORT [Suspect]
     Active Substance: BIMATOPROST\TIMOLOL
     Indication: GLAUCOMA
     Dosage: INSTILL IN BOTH EYES AS DIRECTED
     Route: 047
     Dates: start: 20140422, end: 201409
  3. DUOTRAV [Suspect]
     Active Substance: TIMOLOL\TRAVOPROST
     Indication: GLAUCOMA
     Dosage: INSTILL IN BOTH EYES AS DIRECTED
     Route: 047
     Dates: end: 201305

REACTIONS (1)
  - Ulcerative keratitis [Recovered/Resolved with Sequelae]
